FAERS Safety Report 11548886 (Version 1)
Quarter: 2015Q3

REPORT INFORMATION
  Report Type: Spontaneous
  Country: US (occurrence: US)
  Receive Date: 20150924
  Receipt Date: 20150924
  Transmission Date: 20151125
  Serious: No
  Sender: FDA-Public Use
  Company Number: US-INCYTE CORPORATION-2015IN002453

PATIENT
  Sex: Female

DRUGS (10)
  1. MIDODRINE [Concomitant]
     Active Substance: MIDODRINE
  2. CLARITIN-D 12 HOUR [Concomitant]
     Active Substance: LORATADINE\PSEUDOEPHEDRINE SULFATE
  3. BARACLUDE [Concomitant]
     Active Substance: ENTECAVIR
  4. WARFARIN [Concomitant]
     Active Substance: WARFARIN
  5. ATENOLOL. [Concomitant]
     Active Substance: ATENOLOL
  6. PROGRAF [Concomitant]
     Active Substance: TACROLIMUS\TACROLIMUS ANHYDROUS
  7. LORAZEPAM. [Concomitant]
     Active Substance: LORAZEPAM
  8. CITRACAL + D                       /01438101/ [Concomitant]
  9. JAKAFI [Suspect]
     Active Substance: RUXOLITINIB
     Indication: MYELOFIBROSIS
     Dosage: 10 MG, BID
     Route: 048
  10. MULTIVITAMIN                       /00097801/ [Concomitant]
     Active Substance: VITAMINS

REACTIONS (1)
  - Drug dose omission [Unknown]
